FAERS Safety Report 20026485 (Version 1)
Quarter: 2021Q4

REPORT INFORMATION
  Report Type: Report from Study
  Country: CA (occurrence: CA)
  Receive Date: 20211102
  Receipt Date: 20211102
  Transmission Date: 20220303
  Serious: Yes (Other)
  Sender: FDA-Public Use
  Company Number: CA-OTSUKA-2021_012281

PATIENT
  Age: 62 Year
  Sex: Female

DRUGS (1)
  1. CEDAZURIDINE\DECITABINE [Suspect]
     Active Substance: CEDAZURIDINE\DECITABINE
     Indication: Chronic myelomonocytic leukaemia
     Dosage: 135 MG (35 MG DECITABINE AND 100 MG CEDAZURIDINE)
     Route: 065
     Dates: start: 20210224

REACTIONS (6)
  - Transfusion [Unknown]
  - Pain in extremity [Unknown]
  - Weight decreased [Unknown]
  - Nausea [Recovering/Resolving]
  - Epistaxis [Recovered/Resolved]
  - Fatigue [Unknown]

NARRATIVE: CASE EVENT DATE: 20210902
